FAERS Safety Report 8988274 (Version 1)
Quarter: 2012Q4

REPORT INFORMATION
  Report Type: 
  Country: GB (occurrence: GB)
  Receive Date: 20121227
  Receipt Date: 20121227
  Transmission Date: 20130627
  Serious: Yes (Other)
  Sender: FDA-Public Use
  Company Number: GB-JNJFOC-20121210483

PATIENT
  Sex: Male

DRUGS (6)
  1. GOLIMUMAB [Suspect]
     Indication: PRODUCT USED FOR UNKNOWN INDICATION
     Route: 058
  2. GOLIMUMAB [Suspect]
     Indication: PRODUCT USED FOR UNKNOWN INDICATION
     Dosage: last administration
     Route: 058
     Dates: start: 20121207
  3. MIXTARD [Concomitant]
     Route: 065
  4. METHOTREXATE [Concomitant]
     Route: 065
  5. OXYCODONE [Concomitant]
     Route: 065
  6. CELEBREX [Concomitant]
     Route: 065

REACTIONS (3)
  - Asthma [Unknown]
  - Productive cough [Unknown]
  - Nasopharyngitis [Unknown]
